FAERS Safety Report 7952433-4 (Version None)
Quarter: 2011Q4

REPORT INFORMATION
  Report Type: 
  Country: None (occurrence: None)
  Receive Date: 20111201
  Receipt Date: 20111118
  Transmission Date: 20120403
  Serious: Yes (Hospitalization, Other)
  Sender: FDA-Public Use
  Company Number: JP-GLAXOSMITHKLINE-B0757484A

PATIENT
  Sex: Male

DRUGS (3)
  1. LEVOFLOXACIN [Suspect]
     Indication: PRODUCT USED FOR UNKNOWN INDICATION
     Dates: start: 20110914
  2. LOXONIN [Suspect]
     Indication: PRODUCT USED FOR UNKNOWN INDICATION
     Dates: start: 20110914
  3. LAMICTAL [Suspect]
     Indication: DEMENTIA OF THE ALZHEIMER'S TYPE, UNCOMPLICATED
     Dosage: 25MG PER DAY
     Route: 048
     Dates: start: 20110818, end: 20110930

REACTIONS (20)
  - NIKOLSKY'S SIGN [None]
  - ANAEMIA [None]
  - SCAB [None]
  - GENERALISED ERYTHEMA [None]
  - APHTHOUS STOMATITIS [None]
  - PIGMENTATION DISORDER [None]
  - HISTIOCYTOSIS HAEMATOPHAGIC [None]
  - APHAGIA [None]
  - ORAL MUCOSA EROSION [None]
  - WHITE BLOOD CELL COUNT DECREASED [None]
  - PYREXIA [None]
  - SKIN EXFOLIATION [None]
  - SCROTAL ULCER [None]
  - STEVENS-JOHNSON SYNDROME [None]
  - LIP EROSION [None]
  - BLISTER [None]
  - SKIN EROSION [None]
  - RASH GENERALISED [None]
  - DERMATITIS EXFOLIATIVE [None]
  - SJOGREN'S SYNDROME [None]
